FAERS Safety Report 8811953 (Version 3)
Quarter: 2012Q4

REPORT INFORMATION
  Report Type: 
  Country: US (occurrence: US)
  Receive Date: 20120927
  Receipt Date: 20121116
  Transmission Date: 20130627
  Serious: Yes (Hospitalization, Other)
  Sender: FDA-Public Use
  Company Number: US-PFIZER INC-2012238516

PATIENT
  Age: 57 Year
  Sex: Female
  Weight: 63.49 kg

DRUGS (7)
  1. LIPITOR [Suspect]
     Indication: HIGH CHOLESTEROL
     Dosage: 80 mg, daily
     Route: 048
     Dates: start: 2011
  2. LIPITOR [Suspect]
     Dosage: UNK
     Dates: start: 201202
  3. SODIUM CITRATE ACID/POTASSIUM CITRATE [Suspect]
     Indication: KIDNEY STONE
     Dosage: 10 mg/80 mg, daily
     Route: 048
  4. METOPROLOL [Concomitant]
     Indication: BLOOD PRESSURE HIGH
     Dosage: 50 mg, 2x/day
  5. MAGNESIUM OXIDE [Concomitant]
     Indication: KIDNEY STONE
     Dosage: 400 mg, daily
  6. ENALAPRIL MALEATE [Concomitant]
     Indication: BLOOD PRESSURE HIGH
     Dosage: 5 mg, daily
  7. ASPIRIN [Concomitant]
     Indication: CARDIAC DISORDER
     Dosage: 81 mg, daily

REACTIONS (2)
  - Coronary artery occlusion [Unknown]
  - Medication residue [Unknown]
